FAERS Safety Report 23439600 (Version 5)
Quarter: 2024Q1

REPORT INFORMATION
  Report Type: Spontaneous
  Country: US (occurrence: US)
  Receive Date: 20240124
  Receipt Date: 20240329
  Transmission Date: 20240410
  Serious: No
  Sender: FDA-Public Use
  Company Number: US-PFIZER INC-202400004323

PATIENT
  Age: 13 Year
  Sex: Male
  Weight: 33.11 kg

DRUGS (2)
  1. GENOTROPIN [Suspect]
     Active Substance: SOMATROPIN
     Indication: Growth hormone deficiency
     Dosage: 1.2MG NIGHTLY IN THE BUTT, THIGHS, OR BELLY
     Dates: start: 202306
  2. GENOTROPIN [Suspect]
     Active Substance: SOMATROPIN
     Dosage: 1.4 MG
     Dates: start: 20240102

REACTIONS (3)
  - Incorrect dose administered by device [Unknown]
  - Device mechanical issue [Unknown]
  - Device issue [Unknown]
